FAERS Safety Report 4411191-0 (Version None)
Quarter: 2004Q3

REPORT INFORMATION
  Report Type: 
  Country: None (occurrence: None)
  Receive Date: 20040727
  Receipt Date: 20040712
  Transmission Date: 20050211
  Serious: Yes (Death)
  Sender: FDA-Public Use
  Company Number: 206643

PATIENT
  Age: 54 Year
  Sex: Male
  Weight: 123 kg

DRUGS (7)
  1. BEVACIZUMAB [Suspect]
     Indication: COLORECTAL CANCER METASTATIC
     Dosage: 922 MG, Q3W, INTRAVENOUS
     Route: 042
     Dates: start: 20040505, end: 20040505
  2. CAPECITABINE (CAPECITABINE) [Suspect]
     Indication: COLORECTAL CANCER METASTATIC
     Dosage: 2300 MG, BID, ORAL
     Route: 048
     Dates: start: 20040505, end: 20040513
  3. OXALIPLATIN (OXALIPLATIN) [Suspect]
     Indication: COLORECTAL CANCER METASTATIC
     Dosage: 285 MG, Q3W, INTRAVENOUS
     Route: 042
     Dates: start: 20040505, end: 20040505
  4. ALBYL E (MAGNESIUM OXIDE, ASPIRIN) [Concomitant]
  5. ALLOPUR (ALLOPURINOL) [Concomitant]
  6. DIOVAN [Concomitant]
  7. CARVEDILOL [Concomitant]

REACTIONS (13)
  - ACUTE PULMONARY OEDEMA [None]
  - ARRHYTHMIA [None]
  - CARDIAC DISORDER [None]
  - CONGESTIVE CARDIOMYOPATHY [None]
  - DILATATION VENTRICULAR [None]
  - HEPATIC CONGESTION [None]
  - HEPATIC NECROSIS [None]
  - INTRACARDIAC THROMBUS [None]
  - METASTASES TO LIVER [None]
  - MYOCARDIAL FIBROSIS [None]
  - MYOCARDITIS [None]
  - PULMONARY CONGESTION [None]
  - SUDDEN DEATH [None]
